FAERS Safety Report 7081635-7 (Version None)
Quarter: 2010Q4

REPORT INFORMATION
  Report Type: 
  Country: None (occurrence: None)
  Receive Date: 20101103
  Receipt Date: 20101026
  Transmission Date: 20110411
  Serious: Yes (Hospitalization, Other)
  Sender: FDA-Public Use
  Company Number: PHHY2010FR49786

PATIENT
  Sex: Female

DRUGS (4)
  1. EXJADE [Suspect]
     Indication: IRON OVERLOAD
     Dosage: 125 MG DAILY
     Dates: start: 20091201
  2. EXJADE [Suspect]
     Dosage: 125 MG, BID
     Dates: start: 20100101
  3. EXJADE [Suspect]
     Dosage: 125 MG, TID
     Dates: end: 20100713
  4. EXJADE [Suspect]
     Dosage: UNK
     Dates: start: 20100917

REACTIONS (6)
  - ASCITES [None]
  - CYTOLYTIC HEPATITIS [None]
  - GENERAL PHYSICAL HEALTH DETERIORATION [None]
  - HEPATOMEGALY [None]
  - HILAR LYMPHADENOPATHY [None]
  - VARICELLA [None]
